FAERS Safety Report 14838399 (Version 1)
Quarter: 2018Q2

REPORT INFORMATION
  Report Type: Spontaneous
  Country: US (occurrence: US)
  Receive Date: 20180502
  Receipt Date: 20180502
  Transmission Date: 20180711
  Serious: Yes (Hospitalization)
  Sender: FDA-Public Use
  Company Number: US-ASTRAZENECA-2018SE55279

PATIENT
  Age: 819 Month
  Sex: Male

DRUGS (2)
  1. RISPERDAL [Concomitant]
     Active Substance: RISPERIDONE
  2. SEROQUEL [Suspect]
     Active Substance: QUETIAPINE FUMARATE
     Indication: PRODUCT USED FOR UNKNOWN INDICATION
     Route: 048

REACTIONS (2)
  - Screaming [Unknown]
  - Crying [Unknown]

NARRATIVE: CASE EVENT DATE: 201801
